FAERS Safety Report 9964514 (Version 2)
Quarter: 2014Q2

REPORT INFORMATION
  Report Type: Report from Study
  Country: JP (occurrence: JP)
  Receive Date: 20140305
  Receipt Date: 20140603
  Transmission Date: 20141212
  Serious: Yes (Hospitalization)
  Sender: FDA-Public Use
  Company Number: PHHY2014JP026820

PATIENT
  Sex: 0
  Weight: 61 kg

DRUGS (2)
  1. EXELON [Suspect]
     Indication: DEMENTIA ALZHEIMER^S TYPE
     Dosage: 4.5 MG, QD
     Route: 062
     Dates: start: 20121126, end: 20121219
  2. NICERGOLINE [Concomitant]
     Indication: CEREBRAL INFARCTION
     Dosage: 15 MG, UNK
     Route: 048
     Dates: start: 20120626, end: 20131008

REACTIONS (2)
  - Fracture [Unknown]
  - Fall [Unknown]
